FAERS Safety Report 7582395-3 (Version None)
Quarter: 2011Q2

REPORT INFORMATION
  Report Type: 
  Country: None (occurrence: None)
  Receive Date: 20110630
  Receipt Date: 20110617
  Transmission Date: 20111010
  Serious: Yes (Other)
  Sender: FDA-Public Use
  Company Number: CA-JNJFOC-20110107780

PATIENT
  Sex: Female
  Weight: 87 kg

DRUGS (5)
  1. REMICADE [Suspect]
     Indication: PSORIATIC ARTHROPATHY
     Route: 042
     Dates: start: 20080101, end: 20100701
  2. FOLIC ACID [Concomitant]
     Indication: PREGNANCY
     Route: 048
     Dates: start: 20100901
  3. NAPROXEN [Concomitant]
     Indication: DISCOMFORT
     Route: 048
  4. DICLECTIN [Concomitant]
     Indication: NAUSEA
     Route: 048
     Dates: start: 20100901
  5. PRENATAL VITAMINS [Concomitant]
     Indication: PREGNANCY
     Route: 048
     Dates: start: 20100901

REACTIONS (6)
  - DISCOMFORT [None]
  - BETA HAEMOLYTIC STREPTOCOCCAL INFECTION [None]
  - PREMATURE DELIVERY [None]
  - ABORTION SPONTANEOUS [None]
  - CYSTITIS [None]
  - DRUG EXPOSURE DURING PREGNANCY [None]
